FAERS Safety Report 6722301-4 (Version None)
Quarter: 2010Q2

REPORT INFORMATION
  Report Type: 
  Country: None (occurrence: None)
  Receive Date: 20100512
  Receipt Date: 20100504
  Transmission Date: 20101027
  Serious: Yes (Life-Threatening)
  Sender: FDA-Public Use
  Company Number: DE-PFIZER INC-2010055676

PATIENT
  Age: 45 Year
  Sex: Male

DRUGS (69)
  1. COMBACTAM [Suspect]
     Indication: PNEUMONIA ASPIRATION
     Dosage: 0.5 G, 3X/DAY
     Route: 042
     Dates: start: 20090107, end: 20090113
  2. AMPICILLIN AND SULBACTAM [Suspect]
     Indication: PNEUMONIA ASPIRATION
     Dosage: 3 G, 3X/DAY
     Route: 042
     Dates: start: 20090114, end: 20090118
  3. NORVASC [Suspect]
     Indication: HYPERTENSION
     Dosage: 10 MG, 1X/DAY
     Route: 048
     Dates: start: 20090115
  4. NORVASC [Suspect]
     Dosage: 20 MG, 1X/DAY
     Route: 048
  5. HYDROCHLOROTHIAZIDE [Suspect]
     Indication: HYPERTENSION
     Dosage: 12.5 MG, 1X/DAY
     Route: 048
     Dates: start: 20090101, end: 20090105
  6. HYDROCHLOROTHIAZIDE [Suspect]
     Dosage: 12.5 MG, 2X/DAY
     Route: 048
     Dates: start: 20090115
  7. BERLOSIN [Suspect]
     Indication: PAIN
     Dosage: 1 G, 2X/DAY (MORNING,EVENING)
     Route: 042
     Dates: start: 20090101, end: 20090104
  8. BERLOSIN [Suspect]
     Dosage: 1 G, 1X/DAY (MORNING)
     Route: 042
     Dates: start: 20090106, end: 20090110
  9. BERLOSIN [Suspect]
     Dosage: 1 G, 2X/DAY (MORNING, NOON)
     Route: 042
     Dates: start: 20090113, end: 20090113
  10. KALIUMCHLORID ^BRAUN^ [Suspect]
     Indication: ELECTROLYTE SUBSTITUTION THERAPY
     Dosage: UNK
     Route: 042
     Dates: start: 20090101, end: 20090116
  11. PARACETAMOL [Suspect]
     Indication: PAIN
     Dosage: UNK
     Route: 042
     Dates: start: 20090101, end: 20090105
  12. PARACETAMOL [Suspect]
     Dosage: UNK
     Route: 042
     Dates: start: 20090109, end: 20090112
  13. PARACETAMOL [Suspect]
     Dosage: UNK
     Route: 042
     Dates: start: 20090113, end: 20090118
  14. METOPROLOL SUCCINATE [Suspect]
     Indication: HYPERTENSION
     Dosage: UNK
     Route: 048
     Dates: start: 20090101, end: 20090105
  15. METOPROLOL SUCCINATE [Suspect]
     Dosage: UNK
     Route: 048
     Dates: start: 20090112, end: 20090119
  16. METOPROLOL SUCCINATE [Suspect]
     Dosage: UNK
     Dates: start: 20090119
  17. NORADRENALINE [Suspect]
     Indication: CARDIOVASCULAR INSUFFICIENCY
     Dosage: UNK
     Route: 042
     Dates: start: 20090102, end: 20090109
  18. EMBOLEX [Suspect]
     Indication: THROMBOSIS PROPHYLAXIS
     Dosage: UNK
     Route: 058
     Dates: start: 20090102, end: 20090114
  19. ZOCOR [Suspect]
     Indication: HYPERLIPIDAEMIA
     Dosage: 20 MG, 1X/DAY
     Route: 048
     Dates: start: 20090102, end: 20090114
  20. PERIPLASMAL MIT GLUCOSE [Suspect]
     Indication: ELECTROLYTE SUBSTITUTION THERAPY
     Dosage: 3.5 %, UNK
     Route: 042
     Dates: start: 20090102, end: 20090102
  21. PERIPLASMAL MIT GLUCOSE [Suspect]
     Dosage: 3.5 %, UNK
     Route: 042
     Dates: start: 20090106, end: 20090110
  22. PERIPLASMAL MIT GLUCOSE [Suspect]
     Dosage: 3.5 %, UNK
     Route: 042
     Dates: start: 20090114, end: 20090115
  23. POTASSIUM [Suspect]
     Indication: HYPOKALAEMIA
     Dosage: 40 MMOL, UNK
     Route: 048
     Dates: start: 20090102, end: 20090104
  24. POTASSIUM [Suspect]
     Dosage: 40 MMOL, UNK
     Route: 048
     Dates: start: 20090108, end: 20090112
  25. POTASSIUM [Suspect]
     Dosage: 40 MMOL, UNK
     Route: 048
     Dates: start: 20090116, end: 20090119
  26. FRESUBIN [Suspect]
     Indication: NUTRITIONAL SUPPORT
     Dosage: UNK
     Route: 048
     Dates: start: 20090107, end: 20090119
  27. ELEKTROLYT-INFUSIONSLOESUNG 153 ^BERLIN CHE.^ [Suspect]
     Indication: ELECTROLYTE SUBSTITUTION THERAPY
     Dosage: UNK
     Route: 042
     Dates: start: 20090107, end: 20090119
  28. LACTULOSE [Suspect]
     Indication: CONSTIPATION
     Dosage: 10 ML, 3X/DAY
     Route: 048
     Dates: start: 20090102
  29. NEXIUM [Suspect]
     Indication: PROPHYLAXIS AGAINST GASTROINTESTINAL ULCER
     Dosage: 20 MG, 1X/DAY
     Route: 048
     Dates: start: 20090102
  30. DELIX [Suspect]
     Indication: HYPERTENSION
     Dosage: 5 MG, 1X/DAY
     Route: 048
     Dates: start: 20090103, end: 20090105
  31. DELIX [Suspect]
     Dosage: 2.5 MG, 1X/DAY
     Route: 048
     Dates: start: 20090112
  32. CIPRALEX [Suspect]
     Indication: SEDATION
     Dosage: 10 MG, 1X/DAY
     Route: 048
     Dates: start: 20090103
  33. MIDAZOLAM HCL [Suspect]
     Indication: SEDATION
     Dosage: 100 MG, UNK
     Route: 042
     Dates: start: 20090104, end: 20090114
  34. PROPOFOL [Suspect]
     Indication: SEDATION
     Dosage: 2 %, UNK
     Route: 042
     Dates: start: 20090104, end: 20090114
  35. INSULIN [Suspect]
     Indication: HYPERGLYCAEMIA
     Dosage: UNK
     Route: 042
     Dates: start: 20090104, end: 20090119
  36. SUFENTANIL [Suspect]
     Indication: PAIN
     Dosage: 500 UG, UNK
     Route: 042
     Dates: start: 20090104, end: 20090119
  37. ERYTHROMYCIN [Suspect]
     Indication: PNEUMONIA ASPIRATION
     Dosage: 200 MG, 3X/DAY
     Route: 042
     Dates: start: 20090105, end: 20090109
  38. ERYTHROMYCIN [Suspect]
     Dosage: 200 MG, 3X/DAY
     Route: 042
     Dates: start: 20090111, end: 20090113
  39. MUCOSOLVAN [Suspect]
     Indication: SECRETION DISCHARGE
     Dosage: UNK
     Route: 055
     Dates: start: 20090105, end: 20090113
  40. PASPERTIN [Suspect]
     Indication: VOMITING
     Dosage: 10 MG, 2X/DAY
     Route: 042
     Dates: start: 20090105, end: 20090115
  41. DOMPERIDONE [Suspect]
     Indication: VOMITING
     Dosage: 10 MG, 1X/DAY
     Route: 048
     Dates: start: 20090105, end: 20090116
  42. IPRATROPIUM [Suspect]
     Indication: COUGH
     Dosage: 5 GTT, 4X/DAY
     Route: 048
     Dates: start: 20090106, end: 20090113
  43. SALBUTAMOL [Suspect]
     Indication: COUGH
     Dosage: 5 GTT, 4X/DAY
     Dates: start: 20090106, end: 20090113
  44. LEVOTHYROXINE SODIUM [Suspect]
     Indication: HYPOTHYROIDISM
     Dosage: UNK
     Route: 048
     Dates: start: 20090106, end: 20090119
  45. PIPERACILLIN [Suspect]
     Indication: PNEUMONIA ASPIRATION
     Dosage: 4 G, 3X/DAY
     Route: 042
     Dates: start: 20090107, end: 20090113
  46. HALOPERIDOL [Suspect]
     Indication: WITHDRAWAL SYNDROME
     Dosage: 5 MG, UNK
     Route: 042
     Dates: start: 20090109, end: 20090109
  47. SOLUTIONS FOR PARENTERAL NUTRITION [Suspect]
     Indication: NUTRITIONAL SUPPORT
     Dosage: UNK
     Route: 042
     Dates: start: 20090109, end: 20090112
  48. CLONIDINE [Suspect]
     Indication: WITHDRAWAL SYNDROME
     Dosage: 750 UG, UNK
     Route: 042
     Dates: start: 20090110, end: 20090116
  49. FRAXIPARIN [Suspect]
     Indication: THROMBOSIS PROPHYLAXIS
     Dosage: 0.4 ML, UNK
     Route: 058
     Dates: start: 20090114
  50. EBRANTIL [Suspect]
     Indication: HYPERTENSION
     Dosage: UNK
     Route: 042
     Dates: start: 20090115, end: 20090119
  51. GASTROZEPIN [Suspect]
     Indication: GASTRITIS
     Dosage: 25 MG, 3X/DAY
     Route: 048
     Dates: start: 20090116, end: 20090119
  52. TAVANIC [Suspect]
     Indication: PNEUMONIA ASPIRATION
     Dosage: 500 MG, 3X/DAY
     Route: 048
     Dates: start: 20090116
  53. PARACETAMOL [Suspect]
     Dosage: UNK
     Route: 054
     Dates: start: 20090119
  54. ATACAND [Suspect]
     Indication: HYPERTENSION
     Dosage: UNK
     Route: 048
     Dates: start: 20090119
  55. BERLTHYROX [Suspect]
     Indication: HYPOTHYROIDISM
     Dosage: 75 MG, 1X/DAY
     Route: 048
     Dates: start: 20090119
  56. SCOPOLAMINE [Suspect]
     Indication: PAIN
     Dosage: UNK
     Route: 062
     Dates: start: 20090119
  57. BELOC-ZOC COMP [Concomitant]
     Indication: HYPERTENSION
     Dosage: UNK DF, 1X/DAY
     Route: 048
     Dates: start: 20010101, end: 20090101
  58. EZETIMIBE/SIMVASTATIN [Concomitant]
     Indication: HYPERLIPIDAEMIA
     Dosage: 1DF 1X/D, 10 MG EZETIMIBE/20MG SIMVASTATIN
     Route: 048
     Dates: start: 20010101, end: 20090101
  59. ALLOPURINOL [Concomitant]
     Indication: HYPERURICAEMIA
     Dosage: 300 MG, 1X/DAY
     Route: 048
     Dates: start: 20050101, end: 20090107
  60. METRONIDAZOLE [Concomitant]
     Indication: PNEUMONIA ASPIRATION
     Dosage: 500 MG, 3X/DAY
     Route: 042
     Dates: start: 20090103, end: 20090106
  61. CLAFORAN [Concomitant]
     Indication: PNEUMONIA
     Dosage: 2 G, 3X/DAY
     Route: 042
     Dates: start: 20090103, end: 20090106
  62. MANNITOL [Concomitant]
     Indication: BRAIN OEDEMA
     Dosage: 20%, 125 ML
     Route: 042
     Dates: start: 20090104, end: 20090104
  63. FENTANYL [Concomitant]
     Indication: PAIN
     Dosage: UNK
     Route: 042
     Dates: start: 20090104, end: 20090105
  64. FUROSEMID [Concomitant]
     Indication: POLYURIA
     Dosage: 5 MG, UNK
     Route: 042
     Dates: start: 20090105, end: 20090105
  65. DOBUTAMINE [Concomitant]
     Indication: CARDIAC FAILURE
     Dosage: 250 MG, UNK
     Route: 042
     Dates: start: 20090105, end: 20090107
  66. ACETYLCYSTEINE [Concomitant]
     Indication: SECRETION DISCHARGE
     Dosage: 600 MG, UNK
     Route: 048
     Dates: start: 20090105
  67. TAKUS [Concomitant]
     Indication: DIAGNOSTIC PROCEDURE
     Dosage: UNK
     Route: 042
     Dates: start: 20090106, end: 20090106
  68. MILAX [Concomitant]
     Indication: CONSTIPATION
     Dosage: UNK
     Route: 054
     Dates: start: 20090106, end: 20090106
  69. PYRILAX [Concomitant]
     Indication: CONSTIPATION
     Dosage: UNK
     Route: 054
     Dates: start: 20090106, end: 20090106

REACTIONS (1)
  - TOXIC EPIDERMAL NECROLYSIS [None]
